FAERS Safety Report 11922038 (Version 1)
Quarter: 2016Q1

REPORT INFORMATION
  Report Type: Spontaneous
  Country: US (occurrence: US)
  Receive Date: 20160115
  Receipt Date: 20160115
  Transmission Date: 20160526
  Serious: Yes (Hospitalization, Other)
  Sender: FDA-Public Use
  Company Number: US-TEVA-625136USA

PATIENT
  Age: 27 Year
  Sex: Female

DRUGS (2)
  1. PEGYLATED INTERFERON NOS [Suspect]
     Active Substance: PEGINTERFERON ALFA-2A OR PEGINTERFERON ALFA-2B OR PEGINTERFERON BETA-1A OR PEGINTERFERON LAMBDA-1A
     Indication: HEPATITIS C
     Dosage: 180 MICROGRAMS PER WEEK
     Route: 065
  2. RIBAVIRIN. [Suspect]
     Active Substance: RIBAVIRIN
     Indication: HEPATITIS C
     Dosage: 1 GRAM DAILY;
     Route: 065

REACTIONS (6)
  - Menorrhagia [Recovering/Resolving]
  - Anaphylactic reaction [Unknown]
  - Haemorrhage [Recovered/Resolved]
  - Contusion [Recovered/Resolved]
  - Factor XIII Inhibition [Recovered/Resolved]
  - Antibody test positive [Recovered/Resolved]
